FAERS Safety Report 5108263-4 (Version None)
Quarter: 2006Q3

REPORT INFORMATION
  Report Type: 
  Country: None (occurrence: None)
  Receive Date: 20060914
  Receipt Date: 20060914
  Transmission Date: 20061208
  Serious: Yes (Hospitalization)
  Sender: FDA-Public Use
  Company Number: None

PATIENT
  Age: 58 Year
  Sex: Female
  Weight: 93.1 kg

DRUGS (5)
  1. ALIMTA [Suspect]
     Indication: LUNG NEOPLASM MALIGNANT
     Dosage: 400MG/M2 IV Q2 WEEKS
     Dates: start: 20060809, end: 20060906
  2. TAXOTERE [Suspect]
     Dosage: 40 MG/M2 IV Q2 WEEKS
     Dates: start: 20060809, end: 20060906
  3. SYNTHROID [Concomitant]
  4. FOLIC ACID [Concomitant]
  5. VITAMIN B-12 [Concomitant]

REACTIONS (4)
  - COUGH [None]
  - ERYTHEMA [None]
  - PULMONARY EMBOLISM [None]
  - VENOUS THROMBOSIS [None]
